FAERS Safety Report 18376439 (Version 6)
Quarter: 2020Q4

REPORT INFORMATION
  Report Type: Spontaneous
  Country: US (occurrence: US)
  Receive Date: 20201013
  Receipt Date: 20201228
  Transmission Date: 20210114
  Serious: Yes (Other)
  Sender: FDA-Public Use
  Company Number: US-GLAXOSMITHKLINE-US2020AMR202107

PATIENT
  Sex: Female

DRUGS (5)
  1. ZEJULA [Suspect]
     Active Substance: NIRAPARIB
     Dosage: 100 MG, QD
     Route: 048
     Dates: start: 2020
  2. ZEJULA [Suspect]
     Active Substance: NIRAPARIB
     Dosage: 100 MG, QD
     Route: 048
     Dates: start: 2020
  3. COMPAZINE [Concomitant]
     Active Substance: PROCHLORPERAZINE MALEATE
     Indication: NAUSEA
     Dosage: UNK 30-45 MINUTES PRIOR TO HER ZEJULA
  4. ZEJULA [Suspect]
     Active Substance: NIRAPARIB
     Dosage: 200 MG, QD
     Route: 048
     Dates: start: 2020
  5. ZEJULA [Suspect]
     Active Substance: NIRAPARIB
     Indication: FALLOPIAN TUBE CANCER
     Dosage: 200 MG, QD THE PM WITHOUT FOOD WITH COMPAZINE
     Route: 048
     Dates: start: 20200925

REACTIONS (9)
  - Insomnia [Unknown]
  - Gait disturbance [Unknown]
  - Blood pressure abnormal [Recovered/Resolved]
  - Carbohydrate antigen 125 increased [Unknown]
  - Neuropathy peripheral [Not Recovered/Not Resolved]
  - Nausea [Unknown]
  - Hypoaesthesia [Unknown]
  - White blood cell count increased [Unknown]
  - Constipation [Unknown]
